FAERS Safety Report 23931778 (Version 1)
Quarter: 2024Q2

REPORT INFORMATION
  Report Type: Other
  Country: KZ (occurrence: KZ)
  Receive Date: 20240603
  Receipt Date: 20240603
  Transmission Date: 20240715
  Serious: Yes (Other)
  Sender: FDA-Public Use
  Company Number: KZ-MACLEODS PHARMA-MAC2024047423

PATIENT

DRUGS (2)
  1. PYRAZINAMIDE [Suspect]
     Active Substance: PYRAZINAMIDE
     Indication: Pulmonary tuberculosis
     Route: 065
     Dates: start: 20240228, end: 20240311
  2. PYRAZINAMIDE [Suspect]
     Active Substance: PYRAZINAMIDE
     Indication: Tuberculosis

REACTIONS (5)
  - Laryngeal obstruction [Recovering/Resolving]
  - Laryngeal oedema [Recovering/Resolving]
  - Laryngospasm [Recovering/Resolving]
  - Hypersensitivity [Recovering/Resolving]
  - Dyspnoea [Recovering/Resolving]
